FAERS Safety Report 8572873-2 (Version None)
Quarter: 2012Q3

REPORT INFORMATION
  Report Type: 
  Country: None (occurrence: None)
  Receive Date: 20120806
  Receipt Date: 20120709
  Transmission Date: 20120928
  Serious: Yes (Other)
  Sender: FDA-Public Use
  Company Number: ES-MERCK-1208ESP000659

PATIENT

DRUGS (1)
  1. SUGAMMADEX SODIUM [Suspect]
     Indication: NEUROMUSCULAR BLOCKADE REVERSAL
     Dosage: 200 MG, UNIQUE DOSE
     Route: 042
     Dates: start: 20120420, end: 20120420

REACTIONS (3)
  - ACUTE PULMONARY OEDEMA [None]
  - DYSPNOEA [None]
  - HYPOXIA [None]
